FAERS Safety Report 18659734 (Version 1)
Quarter: 2020Q4

REPORT INFORMATION
  Report Type: Spontaneous
  Country: FR (occurrence: FR)
  Receive Date: 20201224
  Receipt Date: 20201224
  Transmission Date: 20210114
  Serious: Yes (Hospitalization)
  Sender: FDA-Public Use
  Company Number: FR-ACCORD-119561

PATIENT
  Age: 63 Year
  Sex: Male

DRUGS (13)
  1. CYTARABINE/CYTARABINE HYDROCHLORIDE/CYTARABINE OCFOSFATE [Suspect]
     Active Substance: CYTARABINE
     Indication: LYMPHOMA
     Dosage: 21/09, 27/09, 01/10, 09/10 ET 19/10
     Route: 037
     Dates: start: 20180921, end: 20181019
  2. CORTANCYL [Suspect]
     Active Substance: PREDNISONE
     Indication: PROPHYLAXIS OF NAUSEA AND VOMITING
     Dosage: 120 MG / DAY AT A REGRESSIVE DOSE UP TO 40 MG / DAY
     Route: 048
     Dates: start: 20180921
  3. NOXAFIL [Suspect]
     Active Substance: POSACONAZOLE
     Indication: INFECTION PROPHYLAXIS
     Dosage: 300 MG X 2 / D PDT 2 DAYS THEN 300 MG / DAY
     Route: 048
     Dates: start: 20181005
  4. VALACYCLOVIR [Suspect]
     Active Substance: VALACYCLOVIR HYDROCHLORIDE
     Indication: HERPES SIMPLEX
     Dosage: 500 MG
     Route: 048
     Dates: start: 20181005
  5. ALLOPURINOL ARROW [Suspect]
     Active Substance: ALLOPURINOL
     Indication: TUMOUR LYSIS SYNDROME
     Route: 048
     Dates: start: 20180926
  6. HYDROCORTANCYL [Suspect]
     Active Substance: PREDNISONE
     Indication: LYMPHOMA
     Route: 037
     Dates: start: 20180921
  7. ATRIANCE [Suspect]
     Active Substance: NELARABINE
     Indication: LYMPHOMA
     Dosage: 5 MG/ML, SOLUTION POUR PERFUSION
     Route: 042
     Dates: start: 20180926, end: 20180930
  8. VIALEBEX [Concomitant]
     Active Substance: ALBUMIN HUMAN
  9. CYCLOPHOSPHAMIDE/CYCLOPHOSPHAMIDE MONOHYDRATE [Suspect]
     Active Substance: CYCLOPHOSPHAMIDE
     Indication: LYMPHOMA
     Route: 042
     Dates: start: 20180926, end: 20180930
  10. METHOTREXATE. [Suspect]
     Active Substance: METHOTREXATE
     Indication: LYMPHOMA
     Dosage: UNSPECIFIED ,21/09, 27/09, 01/10, 09/10 ET 19/10
     Route: 037
     Dates: start: 20180921, end: 20181019
  11. YDRALBUM [Concomitant]
     Active Substance: ALBUMIN HUMAN
     Dosage: 200 G / L
  12. ETOPOSIDE. [Suspect]
     Active Substance: ETOPOSIDE
     Indication: LYMPHOMA
     Route: 042
     Dates: start: 20180926, end: 20180930
  13. ONDANSETRON [Concomitant]
     Active Substance: ONDANSETRON

REACTIONS (4)
  - Neuropathy peripheral [Not Recovered/Not Resolved]
  - Oedema [Not Recovered/Not Resolved]
  - Herpes simplex reactivation [Recovered/Resolved]
  - Mucosal inflammation [Recovered/Resolved]

NARRATIVE: CASE EVENT DATE: 201810
